FAERS Safety Report 8143811-1 (Version None)
Quarter: 2012Q1

REPORT INFORMATION
  Report Type: 
  Country: None (occurrence: None)
  Receive Date: 20120217
  Receipt Date: 20120206
  Transmission Date: 20120608
  Serious: Yes (Other)
  Sender: FDA-Public Use
  Company Number: US-JNJFOC-20120204738

PATIENT
  Sex: Male
  Weight: 63.5 kg

DRUGS (11)
  1. LIPITOR [Concomitant]
     Indication: HYPERLIPIDAEMIA
     Route: 048
  2. RANEXA [Concomitant]
     Indication: ARTERIAL SPASM
     Route: 048
  3. AMBIEN [Concomitant]
     Indication: SLEEP DISORDER
     Route: 048
  4. FLOMAX [Concomitant]
     Indication: URINARY RETENTION
     Route: 048
  5. REMICADE [Suspect]
     Indication: IRRITABLE BOWEL SYNDROME
     Route: 042
  6. REMICADE [Suspect]
     Indication: CROHN'S DISEASE
     Route: 042
  7. PROTONIX [Suspect]
     Indication: GASTROOESOPHAGEAL REFLUX DISEASE
     Route: 065
     Dates: end: 20110101
  8. TRAMADOL HYDROCHLORIDE [Concomitant]
     Indication: BACK PAIN
     Route: 048
  9. PLAVIX [Concomitant]
     Indication: HYPERLIPIDAEMIA
     Route: 048
  10. HYDROMORPHONE HCL [Concomitant]
     Indication: BACK PAIN
     Route: 048
  11. CELEXA [Concomitant]
     Indication: DEPRESSION
     Route: 048

REACTIONS (6)
  - NASOPHARYNGITIS [None]
  - ARTERIAL SPASM [None]
  - INFLUENZA [None]
  - SINUSITIS [None]
  - CARDIAC DISORDER [None]
  - ADVERSE EVENT [None]
